FAERS Safety Report 21985067 (Version 4)
Quarter: 2023Q2

REPORT INFORMATION
  Report Type: Spontaneous
  Country: US (occurrence: US)
  Receive Date: 20230213
  Receipt Date: 20230405
  Transmission Date: 20230722
  Serious: No
  Sender: FDA-Public Use
  Company Number: US-SANOFI-01485822

PATIENT
  Age: 72 Year
  Sex: Male

DRUGS (4)
  1. LANTUS [Suspect]
     Active Substance: INSULIN GLARGINE
     Indication: Type 2 diabetes mellitus
     Dosage: 40-45 UNITS
     Dates: start: 2006
  2. LANTUS [Suspect]
     Active Substance: INSULIN GLARGINE
     Dosage: 28 IU, QD
  3. LANTUS [Suspect]
     Active Substance: INSULIN GLARGINE
     Dosage: 20 U, QD
  4. LANTUS [Suspect]
     Active Substance: INSULIN GLARGINE
     Dosage: 28 U, QD
     Dates: start: 202302, end: 202302

REACTIONS (2)
  - Blood glucose decreased [Recovered/Resolved]
  - Blood glucose increased [Recovered/Resolved]

NARRATIVE: CASE EVENT DATE: 20230215
